FAERS Safety Report 19401160 (Version 3)
Quarter: 2021Q4

REPORT INFORMATION
  Report Type: Spontaneous
  Country: US (occurrence: US)
  Receive Date: 20210610
  Receipt Date: 20211116
  Transmission Date: 20220303
  Serious: Yes (Hospitalization)
  Sender: FDA-Public Use
  Company Number: US-SEATTLE GENETICS-2020SGN04364

PATIENT
  Age: 52 Year
  Sex: Female

DRUGS (6)
  1. TUKYSA [Suspect]
     Active Substance: TUCATINIB
     Indication: Breast cancer female
  2. TUKYSA [Suspect]
     Active Substance: TUCATINIB
     Dosage: UNK
  3. TUKYSA [Suspect]
     Active Substance: TUCATINIB
     Dosage: UNK
  4. TUKYSA [Suspect]
     Active Substance: TUCATINIB
     Dosage: UNK
  5. TUKYSA [Suspect]
     Active Substance: TUCATINIB
     Dosage: UNK
  6. XELODA [Concomitant]
     Active Substance: CAPECITABINE
     Indication: Breast cancer female

REACTIONS (10)
  - Urinary tract infection [Unknown]
  - Adverse drug reaction [Unknown]
  - Tumour excision [Unknown]
  - Dizziness [Unknown]
  - Cranial operation [Unknown]
  - Product dose omission issue [Unknown]
  - Unevaluable event [Unknown]
  - Nausea [Unknown]
  - Diarrhoea [Unknown]
  - Vomiting [Unknown]

NARRATIVE: CASE EVENT DATE: 20200605
